FAERS Safety Report 10958253 (Version 1)
Quarter: 2015Q1

REPORT INFORMATION
  Report Type: Report from Study
  Country: US (occurrence: US)
  Receive Date: 20150326
  Receipt Date: 20150326
  Transmission Date: 20150721
  Serious: Yes (Death, Other)
  Sender: FDA-Public Use
  Company Number: US-GILEAD-2015-0144942

PATIENT
  Age: 50 Year
  Sex: Female

DRUGS (1)
  1. IDELALISIB [Suspect]
     Active Substance: IDELALISIB
     Indication: ADULT T-CELL LYMPHOMA/LEUKAEMIA
     Dosage: 150 MG, BID
     Route: 048

REACTIONS (2)
  - Off label use [Unknown]
  - Adult T-cell lymphoma/leukaemia [Fatal]
